FAERS Safety Report 12637136 (Version 1)
Quarter: 2016Q3

REPORT INFORMATION
  Report Type: Spontaneous
  Country: US (occurrence: US)
  Receive Date: 20160809
  Receipt Date: 20160809
  Transmission Date: 20161109
  Serious: No
  Sender: FDA-Public Use
  Company Number: US-BEH-2015053287

PATIENT
  Age: 22 Year
  Sex: Male
  Weight: 40 kg

DRUGS (8)
  1. PRIVIGEN [Suspect]
     Active Substance: HUMAN IMMUNOGLOBULIN G
     Indication: HYPOGAMMAGLOBULINAEMIA
     Dosage: EVERY 6-8 WEEKS( 20 G VIALS)
     Route: 042
     Dates: start: 20150813, end: 20150813
  2. LMX [Concomitant]
     Active Substance: LIDOCAINE
     Indication: PREMEDICATION
  3. CALCITRIOL. [Concomitant]
     Active Substance: CALCITRIOL
  4. EPIPEN [Concomitant]
     Active Substance: EPINEPHRINE
     Indication: ANAPHYLACTIC REACTION
  5. DEXTROSE. [Concomitant]
     Active Substance: DEXTROSE
  6. SODIUM CHLORIDE. [Concomitant]
     Active Substance: SODIUM CHLORIDE
     Indication: FLUSHING
  7. DIPHENHYDRAMINE. [Concomitant]
     Active Substance: DIPHENHYDRAMINE
  8. ACETAMINOPHEN. [Concomitant]
     Active Substance: ACETAMINOPHEN

REACTIONS (1)
  - Heart rate increased [Recovered/Resolved]

NARRATIVE: CASE EVENT DATE: 20150813
